FAERS Safety Report 17930309 (Version 1)
Quarter: 2020Q2

REPORT INFORMATION
  Report Type: Spontaneous
  Country: US (occurrence: US)
  Receive Date: 20200623
  Receipt Date: 20200623
  Transmission Date: 20200714
  Serious: No
  Sender: FDA-Public Use
  Company Number: US-BEH-2020118871

PATIENT
  Sex: Male

DRUGS (1)
  1. PRIVIGEN [Suspect]
     Active Substance: HUMAN IMMUNOGLOBULIN G
     Indication: CHRONIC INFLAMMATORY DEMYELINATING POLYRADICULONEUROPATHY
     Dosage: 55 GRAM (550 ML) DAILY FOR 2 DAYS EVERY 2 WEEKS (110 GRAMS TOTAL OVER 2 DAYS)
     Route: 042
     Dates: start: 20200221

REACTIONS (2)
  - Rehabilitation therapy [Unknown]
  - Therapy interrupted [Unknown]
